FAERS Safety Report 7763391-X (Version None)
Quarter: 2011Q3

REPORT INFORMATION
  Report Type: 
  Country: None (occurrence: None)
  Receive Date: 20110920
  Receipt Date: 20110915
  Transmission Date: 20111222
  Serious: Yes (Hospitalization, Other)
  Sender: FDA-Public Use
  Company Number: US-PFIZER INC-2011143891

PATIENT
  Sex: Male

DRUGS (1)
  1. CHANTIX [Suspect]
     Indication: SMOKING CESSATION THERAPY
     Dosage: 1 MG, UNK
     Dates: start: 20071126, end: 20080501

REACTIONS (18)
  - AGGRESSION [None]
  - SLEEP DISORDER [None]
  - LETHARGY [None]
  - SUICIDE ATTEMPT [None]
  - DEPRESSION [None]
  - AGITATION [None]
  - BIPOLAR DISORDER [None]
  - ABNORMAL DREAMS [None]
  - IRRITABILITY [None]
  - DISTURBANCE IN ATTENTION [None]
  - HALLUCINATION [None]
  - ABNORMAL BEHAVIOUR [None]
  - DISORIENTATION [None]
  - MOOD SWINGS [None]
  - THINKING ABNORMAL [None]
  - PARANOIA [None]
  - ANXIETY [None]
  - RESTLESSNESS [None]
